FAERS Safety Report 11855004 (Version 2)
Quarter: 2016Q1

REPORT INFORMATION
  Report Type: Spontaneous
  Country: US (occurrence: US)
  Receive Date: 20151221
  Receipt Date: 20160217
  Transmission Date: 20160526
  Serious: Yes (Hospitalization, Other)
  Sender: FDA-Public Use
  Company Number: US-AMGEN-USASP2015135035

PATIENT
  Age: 84 Year
  Sex: Female
  Weight: 62.59 kg

DRUGS (6)
  1. FUROSEMIDE. [Concomitant]
     Active Substance: FUROSEMIDE
     Indication: BLOOD POTASSIUM INCREASED
     Dosage: 40 MG, QD
     Dates: start: 201510
  2. LEVEMIR [Concomitant]
     Active Substance: INSULIN DETEMIR
     Indication: DIABETES MELLITUS
     Dosage: 12 UNIT, QD
  3. HUMALOG [Concomitant]
     Active Substance: INSULIN LISPRO
     Indication: DIABETES MELLITUS
     Dosage: 5 UNIT, SLIDING SCALE
     Dates: start: 201510
  4. PROCRIT [Suspect]
     Active Substance: ERYTHROPOIETIN
     Indication: ANAEMIA
     Dosage: UNK
     Route: 058
     Dates: end: 201511
  5. LEVOTHYROXINE. [Concomitant]
     Active Substance: LEVOTHYROXINE
     Indication: HYPOTHYROIDISM
     Dosage: 25 MCG, 2 ON MONDAY AND THRU, 1 EVERY OTHER DAY OF WEEK
     Dates: start: 201510
  6. PROCRIT [Suspect]
     Active Substance: ERYTHROPOIETIN
     Dosage: 10000 UNIT, QWK
     Route: 058
     Dates: start: 201511

REACTIONS (8)
  - Amputation [Unknown]
  - No therapeutic response [Unknown]
  - Blood count abnormal [Unknown]
  - Hospitalisation [Unknown]
  - Haemoglobin abnormal [Unknown]
  - Osteomyelitis [Unknown]
  - Renal disorder [Unknown]
  - Transfusion [Unknown]

NARRATIVE: CASE EVENT DATE: 2015
